FAERS Safety Report 5299535-1 (Version None)
Quarter: 2007Q2

REPORT INFORMATION
  Report Type: 
  Country: None (occurrence: None)
  Receive Date: 20070410
  Receipt Date: 20070403
  Transmission Date: 20071010
  Serious: Yes (Life-Threatening, Hospitalization)
  Sender: FDA-Public Use
  Company Number: A0641229A

PATIENT
  Age: 7 Year
  Sex: Male
  Weight: 30.4364 kg

DRUGS (2)
  1. ADVAIR DISKUS 100/50 [Suspect]
     Indication: BRONCHIAL HYPERREACTIVITY
     Dosage: INHALED
     Route: 055
     Dates: start: 20061211, end: 20070214
  2. ALBUTEROL SULFATE [Concomitant]

REACTIONS (3)
  - CARDIO-RESPIRATORY ARREST [None]
  - STATUS ASTHMATICUS [None]
  - UPPER RESPIRATORY TRACT INFECTION [None]
